FAERS Safety Report 10600228 (Version 7)
Quarter: 2016Q4

REPORT INFORMATION
  Report Type: Spontaneous
  Country: FR (occurrence: FR)
  Receive Date: 20141122
  Receipt Date: 20161021
  Transmission Date: 20170206
  Serious: Yes (Hospitalization, Other)
  Sender: FDA-Public Use
  Company Number: FR-009507513-1311FRA007885

PATIENT
  Sex: Female
  Weight: 56 kg

DRUGS (1)
  1. NEXPLANON [Suspect]
     Active Substance: ETONOGESTREL
     Indication: CONTRACEPTION
     Dosage: 1 DF, UNK
     Route: 059
     Dates: start: 20130402, end: 20141020

REACTIONS (35)
  - Pulmonary resection [Recovering/Resolving]
  - Stress [Unknown]
  - Complication associated with device [Recovered/Resolved]
  - Device difficult to use [Unknown]
  - Device deployment issue [Recovered/Resolved]
  - Implant site haematoma [Unknown]
  - Asthenia [Unknown]
  - Weight decreased [Unknown]
  - Subcutaneous emphysema [Recovered/Resolved]
  - Pneumothorax [Recovered/Resolved]
  - Amenorrhoea [Unknown]
  - Hot flush [Unknown]
  - Urinary tract infection [Unknown]
  - Depression [Unknown]
  - Anxiety [Unknown]
  - Chest pain [Unknown]
  - Vaginal haemorrhage [Recovered/Resolved]
  - Device embolisation [Recovered/Resolved]
  - Pleural effusion [Unknown]
  - Dizziness [Unknown]
  - Chronic respiratory failure [Unknown]
  - Needle issue [Unknown]
  - Menstruation irregular [Unknown]
  - Libido decreased [Unknown]
  - Hair growth abnormal [Unknown]
  - Device dislocation [Recovered/Resolved]
  - Surgery [Recovered/Resolved]
  - Affective disorder [Unknown]
  - Iron deficiency anaemia [Unknown]
  - Migraine [Unknown]
  - Back pain [Unknown]
  - Pain [Unknown]
  - Sleep disorder [Unknown]
  - Disturbance in attention [Unknown]
  - Metrorrhagia [Recovered/Resolved]

NARRATIVE: CASE EVENT DATE: 20130402
